FAERS Safety Report 23131282 (Version 2)
Quarter: 2023Q4

REPORT INFORMATION
  Report Type: Spontaneous
  Country: US (occurrence: US)
  Receive Date: 20231031
  Receipt Date: 20231107
  Transmission Date: 20240110
  Serious: No
  Sender: FDA-Public Use
  Company Number: US-SANOFI-01815582

PATIENT
  Age: 74 Year
  Sex: Female

DRUGS (4)
  1. DUPIXENT [Suspect]
     Active Substance: DUPILUMAB
     Indication: Eczema
     Dosage: UNK
     Route: 058
     Dates: start: 20231005
  2. SUMATRIPTAN [Concomitant]
     Active Substance: SUMATRIPTAN
  3. PROLIA [Concomitant]
     Active Substance: DENOSUMAB
  4. ATIVAN [Concomitant]
     Active Substance: LORAZEPAM
     Indication: Stress

REACTIONS (2)
  - Sleep disorder [Not Recovered/Not Resolved]
  - Pruritus [Not Recovered/Not Resolved]
